FAERS Safety Report 8229624-0 (Version None)
Quarter: 2012Q1

REPORT INFORMATION
  Report Type: 
  Country: None (occurrence: None)
  Receive Date: 20120322
  Receipt Date: 20120314
  Transmission Date: 20120608
  Serious: No
  Sender: FDA-Public Use
  Company Number: PHHY2012TW013660

PATIENT
  Sex: Female

DRUGS (2)
  1. ZOLEDRONOC ACID [Suspect]
     Indication: OSTEOPOROSIS
     Dosage: 5 MG, UNK
     Route: 042
     Dates: start: 20120210, end: 20120210
  2. N/ S 250CC [Concomitant]
     Dosage: UNK UKN, UNK
     Route: 042
     Dates: start: 20120210, end: 20120210

REACTIONS (3)
  - ORAL HERPES [None]
  - CHEST PAIN [None]
  - CHEST DISCOMFORT [None]
